FAERS Safety Report 5913926-4 (Version None)
Quarter: 2008Q4

REPORT INFORMATION
  Report Type: 
  Country: None (occurrence: None)
  Receive Date: 20081009
  Receipt Date: 20081007
  Transmission Date: 20090506
  Serious: Yes (Other)
  Sender: FDA-Public Use
  Company Number: D0058952A

PATIENT
  Age: 47 Year
  Sex: Female
  Weight: 75 kg

DRUGS (4)
  1. QUILONUM RETARD [Suspect]
     Dosage: 9000MG SINGLE DOSE
     Route: 048
     Dates: start: 20081005, end: 20081005
  2. AMITRIPTYLINE HCL [Suspect]
     Dosage: 1250MG SINGLE DOSE
     Route: 048
     Dates: start: 20081005, end: 20081005
  3. IBUPROFEN [Suspect]
     Dosage: 6000MG SINGLE DOSE
     Route: 048
     Dates: start: 20081005, end: 20081005
  4. LAMOTRIGINE [Suspect]
     Dosage: 4000MG SINGLE DOSE
     Route: 048
     Dates: start: 20081005, end: 20081005

REACTIONS (4)
  - ACIDOSIS [None]
  - COMA [None]
  - INTENTIONAL OVERDOSE [None]
  - SUICIDE ATTEMPT [None]
